FAERS Safety Report 15847395 (Version 1)
Quarter: 2019Q1

REPORT INFORMATION
  Report Type: Spontaneous
  Country: PL (occurrence: PL)
  Receive Date: 20190121
  Receipt Date: 20190121
  Transmission Date: 20190417
  Serious: Yes (Hospitalization, Other)
  Sender: FDA-Public Use
  Company Number: PL-AUROBINDO-AUR-APL-2019-001921

PATIENT
  Age: 3 Decade
  Sex: Male

DRUGS (6)
  1. RISPOLEPT CONSTA [Suspect]
     Active Substance: RISPERIDONE
     Dosage: 2 MILLIGRAM, ONCE A DAY
     Route: 048
  2. CANNABIS SATIVA [Suspect]
     Active Substance: CANNABIS SATIVA SUBSP. SATIVA FLOWERING TOP
     Indication: PRODUCT USED FOR UNKNOWN INDICATION
     Dosage: UNK
     Route: 065
  3. AMFETAMINE [Suspect]
     Active Substance: AMPHETAMINE
     Indication: PRODUCT USED FOR UNKNOWN INDICATION
     Dosage: UNK
     Route: 065
  4. DEPAKINE                           /00228501/ [Suspect]
     Active Substance: VALPROIC ACID
     Indication: PSYCHIATRIC SYMPTOM
     Dosage: UNK
     Route: 065
  5. OLANZAPINE. [Suspect]
     Active Substance: OLANZAPINE
     Indication: PSYCHIATRIC SYMPTOM
     Dosage: UNK
     Route: 048
  6. RISPOLEPT CONSTA [Suspect]
     Active Substance: RISPERIDONE
     Indication: PSYCHIATRIC SYMPTOM
     Dosage: 50 MILLIGRAM, UNK
     Route: 030
     Dates: start: 2012, end: 201212

REACTIONS (7)
  - Mental disorder [Unknown]
  - Drug abuse [Unknown]
  - Poor quality product administered [Unknown]
  - Product complaint [Unknown]
  - Central nervous system injury [Unknown]
  - Mixed delusion [Unknown]
  - Product storage error [Unknown]

NARRATIVE: CASE EVENT DATE: 2012
